FAERS Safety Report 9423657 (Version 3)
Quarter: 2014Q1

REPORT INFORMATION
  Report Type: Spontaneous
  Country: US (occurrence: US)
  Receive Date: 20130726
  Receipt Date: 20140204
  Transmission Date: 20141002
  Serious: Yes (Hospitalization)
  Sender: FDA-Public Use
  Company Number: US-UCBSA-092774

PATIENT
  Age: 0 Day
  Sex: Male
  Weight: 2.4 kg

DRUGS (5)
  1. KEPPRA XR [Suspect]
     Indication: CONVULSION
     Dosage: 750 MG 4 TABLETSAT NIGHT  DAILY
     Route: 064
     Dates: end: 20120920
  2. BACTRIM [Concomitant]
     Indication: URINARY TRACT INFECTION
  3. KEFLEX [Concomitant]
     Indication: URINARY TRACT INFECTION
  4. VANCOMYCIN [Concomitant]
  5. FLAGYL [Concomitant]
     Indication: CLOSTRIDIUM DIFFICILE INFECTION

REACTIONS (13)
  - Sepsis [Not Recovered/Not Resolved]
  - Foetal growth restriction [Recovered/Resolved]
  - Urinary tract infection [Not Recovered/Not Resolved]
  - Vesicoureteric reflux [Not Recovered/Not Resolved]
  - Clostridium difficile infection [Not Recovered/Not Resolved]
  - Kidney infection [Not Recovered/Not Resolved]
  - Underweight [Unknown]
  - Pyrexia [Recovered/Resolved]
  - Lethargy [Recovered/Resolved]
  - Decreased appetite [Recovered/Resolved]
  - Irritability [Recovered/Resolved]
  - Foetal exposure during pregnancy [Recovered/Resolved]
  - Exposure during breast feeding [Recovered/Resolved]
